FAERS Safety Report 12482393 (Version 1)
Quarter: 2016Q2

REPORT INFORMATION
  Report Type: Spontaneous
  Country: FR (occurrence: FR)
  Receive Date: 20160620
  Receipt Date: 20160620
  Transmission Date: 20160815
  Serious: Yes (Other)
  Sender: FDA-Public Use
  Company Number: FR-TEVA-668304ISR

PATIENT
  Age: 53 Year
  Sex: Male

DRUGS (5)
  1. ZOPICLONE [Concomitant]
     Active Substance: ZOPICLONE
     Indication: ANXIOLYTIC THERAPY
     Route: 065
  2. BACLOFEN. [Interacting]
     Active Substance: BACLOFEN
     Indication: ALCOHOL REHABILITATION
     Dosage: 40 MILLIGRAM DAILY;
     Route: 048
  3. LOXAPINE. [Concomitant]
     Active Substance: LOXAPINE
     Route: 065
  4. VENLAFAXINE [Suspect]
     Active Substance: VENLAFAXINE HYDROCHLORIDE
     Indication: ANTIDEPRESSANT THERAPY
     Route: 065
  5. RISPERIDONE. [Concomitant]
     Active Substance: RISPERIDONE
     Route: 065

REACTIONS (2)
  - Drug interaction [Unknown]
  - Sleep apnoea syndrome [Recovering/Resolving]
